FAERS Safety Report 16573142 (Version 1)
Quarter: 2019Q3

REPORT INFORMATION
  Report Type: Spontaneous
  Country: US (occurrence: US)
  Receive Date: 20190715
  Receipt Date: 20190715
  Transmission Date: 20191004
  Serious: Yes (Other)
  Sender: FDA-Public Use
  Company Number: US-PFIZER INC-2019294651

PATIENT
  Age: 79 Year
  Sex: Female

DRUGS (13)
  1. JAKAFI [Suspect]
     Active Substance: RUXOLITINIB
     Dosage: 10 MG, DAILY(ON SUN-T-TH-SAT)
     Route: 048
     Dates: start: 20170329
  2. FUROSEMIDE. [Concomitant]
     Active Substance: FUROSEMIDE
     Dosage: UNK
  3. VITAMIN D3 [Concomitant]
     Active Substance: CHOLECALCIFEROL
     Dosage: UNK
  4. JAKAFI [Suspect]
     Active Substance: RUXOLITINIB
     Indication: POLYCYTHAEMIA VERA
     Dosage: 10 MG, 2X/DAY (ON MONDAY, WEDNESDAY AND FRIDAY)
     Route: 048
     Dates: start: 20170203
  5. JAKAFI [Suspect]
     Active Substance: RUXOLITINIB
     Dosage: 10 MG, 1X/DAY(ON TUESDAY, THURSDAY, SATURDAY, AND SUNDAY)
     Route: 048
     Dates: start: 20170203
  6. JAKAFI [Suspect]
     Active Substance: RUXOLITINIB
     Dosage: 10 MG, 2X/DAY ((M, W, F) )
     Route: 048
     Dates: start: 20170329
  7. JAKAFI [Suspect]
     Active Substance: RUXOLITINIB
     Dosage: 5 MG, 2X/DAY
     Route: 048
  8. VITAMIN B 12 [CYANOCOBALAMIN] [Concomitant]
     Dosage: UNK
  9. ALLOPURINOL. [Concomitant]
     Active Substance: ALLOPURINOL
     Dosage: UNK
  10. ATENOLOL. [Concomitant]
     Active Substance: ATENOLOL
     Dosage: UNK
  11. CEFDINIR. [Concomitant]
     Active Substance: CEFDINIR
     Dosage: UNK
  12. HYDRALAZINE [Concomitant]
     Active Substance: HYDRALAZINE HYDROCHLORIDE
     Dosage: UNK
  13. AMLODIPINE BESILATE [Suspect]
     Active Substance: AMLODIPINE BESYLATE
     Indication: HYPERTENSION
     Dosage: UNK

REACTIONS (16)
  - Swollen tongue [Unknown]
  - Gout [Recovering/Resolving]
  - Tongue discomfort [Unknown]
  - Insomnia [Unknown]
  - Headache [Unknown]
  - Calculus bladder [Recovering/Resolving]
  - Dry skin [Not Recovered/Not Resolved]
  - Glossodynia [Unknown]
  - Head discomfort [Unknown]
  - Joint swelling [Unknown]
  - Chills [Unknown]
  - Mouth swelling [Unknown]
  - Sinusitis [Unknown]
  - Tongue discolouration [Unknown]
  - Oral pain [Unknown]
  - Muscle spasms [Not Recovered/Not Resolved]

NARRATIVE: CASE EVENT DATE: 20170203
